FAERS Safety Report 10679739 (Version 1)
Quarter: 2014Q4

REPORT INFORMATION
  Report Type: Spontaneous
  Country: US (occurrence: US)
  Receive Date: 20141229
  Receipt Date: 20141229
  Transmission Date: 20150529
  Serious: No
  Sender: FDA-Public Use
  Company Number: US-GLAXOSMITHKLINE-US2014GSK043124

PATIENT
  Age: 65 Year
  Sex: Female

DRUGS (2)
  1. DASATINIB [Concomitant]
     Active Substance: DASATINIB
  2. PAZOPANIB [Suspect]
     Active Substance: PAZOPANIB
     Indication: GRANULAR CELL TUMOUR
     Dosage: 800 MG, CYC

REACTIONS (2)
  - Blood pressure increased [Unknown]
  - Diarrhoea [Unknown]
